FAERS Safety Report 17996143 (Version 3)
Quarter: 2020Q3

REPORT INFORMATION
  Report Type: Spontaneous
  Country: US (occurrence: US)
  Receive Date: 20200708
  Receipt Date: 20200807
  Transmission Date: 20201103
  Serious: Yes (Other)
  Sender: FDA-Public Use
  Company Number: US-AMGEN-USASP2020106500

PATIENT
  Age: 67 Year
  Sex: Female

DRUGS (2)
  1. ENBREL [Suspect]
     Active Substance: ETANERCEPT
     Indication: RHEUMATOID ARTHRITIS
     Dosage: 50 MILLIGRAM, QWK
     Route: 065
  2. ENBREL [Suspect]
     Active Substance: ETANERCEPT
     Dosage: 50 MILLIGRAM, QWK
     Route: 065

REACTIONS (8)
  - Device use error [Unknown]
  - Intentional dose omission [Unknown]
  - Hypersomnia [Unknown]
  - Device issue [Unknown]
  - Drug dose omission by device [Unknown]
  - Deafness [Unknown]
  - Spinal disorder [Unknown]
  - Cyst [Unknown]

NARRATIVE: CASE EVENT DATE: 2019
